FAERS Safety Report 20644248 (Version 1)
Quarter: 2022Q1

REPORT INFORMATION
  Report Type: Spontaneous
  Country: US (occurrence: US)
  Receive Date: 20220328
  Receipt Date: 20220328
  Transmission Date: 20220423
  Serious: No
  Sender: FDA-Public Use
  Company Number: US-PFIZER INC-202200341901

PATIENT
  Age: 91 Year
  Sex: Male
  Weight: 63.488 kg

DRUGS (1)
  1. GABAPENTIN [Suspect]
     Active Substance: GABAPENTIN
     Indication: Pain in extremity
     Dosage: 300 MG, 1X/DAY  (ONE CAPSULE NIGHTLY BY MOUTH)
     Route: 048

REACTIONS (5)
  - Drug ineffective [Unknown]
  - Weight increased [Unknown]
  - Somnolence [Unknown]
  - Expired product administered [Unknown]
  - Therapeutic response unexpected [Unknown]
